FAERS Safety Report 10657397 (Version 1)
Quarter: 2014Q4

REPORT INFORMATION
  Report Type: Spontaneous
  Country: US (occurrence: None)
  Receive Date: 20141215
  Receipt Date: 20141215
  Transmission Date: 20150529
  Serious: Yes (Other)
  Sender: FDA-Public Use
  Company Number: US-ALSI-201400249

PATIENT
  Sex: Male

DRUGS (3)
  1. (OXYGEN) [Concomitant]
  2. NITROUS OXIDE. [Suspect]
     Active Substance: NITROUS OXIDE
     Indication: DRUG ABUSE
     Dosage: 67 % TOTAL RESPIRATORY
  3. NITROUS OXIDE. [Suspect]
     Active Substance: NITROUS OXIDE
     Indication: OCCUPATIONAL EXPOSURE TO PRODUCT
     Dosage: 67% RESPIRATORY.

REACTIONS (4)
  - Occupational exposure to product [None]
  - Subacute combined cord degeneration [None]
  - Drug abuse [None]
  - Abasia [None]
